FAERS Safety Report 9303123 (Version 1)
Quarter: 2013Q2

REPORT INFORMATION
  Report Type: Spontaneous
  Country: GB (occurrence: None)
  Receive Date: 20130516
  Receipt Date: 20130516
  Transmission Date: 20140414
  Serious: Yes (Other)
  Sender: FDA-Public Use
  Company Number: AUR-APL-2013-03888

PATIENT
  Age: 25 Year
  Sex: Male
  Weight: 96.16 kg

DRUGS (1)
  1. SERTRALINE [Suspect]
     Indication: ANXIETY
     Route: 048
     Dates: start: 20120601, end: 20130422

REACTIONS (2)
  - Abnormal behaviour [None]
  - Tongue biting [None]
